FAERS Safety Report 11976363 (Version 1)
Quarter: 2016Q1

REPORT INFORMATION
  Report Type: Spontaneous
  Country: US (occurrence: None)
  Receive Date: 20160128
  Receipt Date: 20160128
  Transmission Date: 20160526
  Serious: Yes (Hospitalization)
  Sender: FDA-Public Use
  Company Number: None

PATIENT
  Age: 55 Year
  Sex: Male
  Weight: 111.8 kg

DRUGS (19)
  1. PANTOPRAZOLE [Concomitant]
     Active Substance: PANTOPRAZOLE SODIUM
  2. ACETAMINOPHEN. [Concomitant]
     Active Substance: ACETAMINOPHEN
  3. INSULIN ASPART [Concomitant]
     Active Substance: INSULIN ASPART
  4. ARIXTRA [Concomitant]
     Active Substance: FONDAPARINUX SODIUM
  5. INSULIN DETEMIR [Concomitant]
     Active Substance: INSULIN DETEMIR
  6. HYDROCODONE-IBUPROFEN [Concomitant]
  7. DEXTROSE. [Concomitant]
     Active Substance: DEXTROSE
  8. GLUCAGON. [Concomitant]
     Active Substance: GLUCAGON
  9. MAGNESIUM CHLORIDE. [Concomitant]
     Active Substance: MAGNESIUM CHLORIDE
  10. ONDANSETRON [Concomitant]
     Active Substance: ONDANSETRON
  11. VANCOMYCIN [Concomitant]
     Active Substance: VANCOMYCIN
  12. VENLAFAXINE [Concomitant]
     Active Substance: VENLAFAXINE HYDROCHLORIDE
  13. GABAPENTIN. [Concomitant]
     Active Substance: GABAPENTIN
  14. HARVONI [Suspect]
     Active Substance: LEDIPASVIR\SOFOSBUVIR
     Indication: HEPATITIS C
     Dosage: 90/400 1X/DAILY ORAL
     Route: 048
     Dates: start: 20150318, end: 20150610
  15. DOCUSATE [Concomitant]
     Active Substance: DOCUSATE
  16. GLUCOSE [Concomitant]
     Active Substance: DEXTROSE
  17. LACTULOSE. [Concomitant]
     Active Substance: LACTULOSE
  18. MORPHINE [Concomitant]
     Active Substance: MORPHINE
  19. ACYCLOVIR. [Concomitant]
     Active Substance: ACYCLOVIR

REACTIONS (13)
  - Staphylococcus test positive [None]
  - Klebsiella test positive [None]
  - Coagulopathy [None]
  - Platelet count decreased [None]
  - Culture urine positive [None]
  - Device related infection [None]
  - Chest wall abscess [None]
  - Thrombocytopenia [None]
  - Deep vein thrombosis [None]
  - Dehydration [None]
  - Blood culture positive [None]
  - Sepsis [None]
  - Febrile neutropenia [None]

NARRATIVE: CASE EVENT DATE: 20150608
